FAERS Safety Report 14517858 (Version 1)
Quarter: 2018Q1

REPORT INFORMATION
  Report Type: Spontaneous
  Country: US (occurrence: US)
  Receive Date: 20180209
  Receipt Date: 20180209
  Transmission Date: 20180509
  Serious: Yes (Hospitalization)
  Sender: FDA-Public Use
  Company Number: None

PATIENT
  Age: 50 Year
  Sex: Female

DRUGS (25)
  1. LEFLUNOMIDE. [Concomitant]
     Active Substance: LEFLUNOMIDE
  2. DULOXETINE. [Concomitant]
     Active Substance: DULOXETINE
  3. TAMIFLU [Concomitant]
     Active Substance: OSELTAMIVIR PHOSPHATE
  4. CIPRO [Concomitant]
     Active Substance: CIPROFLOXACIN HYDROCHLORIDE
  5. MULTIVITAMIN [Concomitant]
     Active Substance: VITAMINS
  6. LISINOPRIL. [Concomitant]
     Active Substance: LISINOPRIL
  7. ARAVA [Concomitant]
     Active Substance: LEFLUNOMIDE
  8. ESTRADIOL. [Concomitant]
     Active Substance: ESTRADIOL
  9. CEFUROXIME. [Concomitant]
     Active Substance: CEFUROXIME
  10. CELEBREX [Concomitant]
     Active Substance: CELECOXIB
  11. LORAZEPAM. [Concomitant]
     Active Substance: LORAZEPAM
  12. XELJANZ [Concomitant]
     Active Substance: TOFACITINIB CITRATE
  13. SMZ/TMP [Concomitant]
     Active Substance: SULFAMETHOXAZOLE\TRIMETHOPRIM
  14. CYCLOBENZOPRINE [Concomitant]
     Active Substance: CYCLOBENZAPRINE
  15. GABAPENTIN. [Concomitant]
     Active Substance: GABAPENTIN
  16. CARISOPRODOL. [Concomitant]
     Active Substance: CARISOPRODOL
  17. ATORVASTATIN [Concomitant]
     Active Substance: ATORVASTATIN
  18. LEFLUNOMIDE. [Concomitant]
     Active Substance: LEFLUNOMIDE
  19. OSELTAMIVIR [Concomitant]
     Active Substance: OSELTAMIVIR
  20. ENBREL [Suspect]
     Active Substance: ETANERCEPT
     Indication: RHEUMATOID ARTHRITIS
     Dosage: 25MG Q 3 DAYS SUBCUTANEOUSLY
     Route: 058
     Dates: start: 20170322
  21. LEVAQUIN [Concomitant]
     Active Substance: LEVOFLOXACIN
  22. MUPIROCIN. [Concomitant]
     Active Substance: MUPIROCIN
  23. PROTONIX [Concomitant]
     Active Substance: PANTOPRAZOLE SODIUM
  24. HCTZ [Concomitant]
     Active Substance: HYDROCHLOROTHIAZIDE
  25. TRANSDERM-SC [Concomitant]

REACTIONS (3)
  - Rheumatoid arthritis [None]
  - Cellulitis [None]
  - Drug dose omission [None]

NARRATIVE: CASE EVENT DATE: 20171219
